FAERS Safety Report 7339120-0 (Version None)
Quarter: 2011Q1

REPORT INFORMATION
  Report Type: 
  Country: None (occurrence: None)
  Receive Date: 20110308
  Receipt Date: 20110223
  Transmission Date: 20110831
  Serious: Yes (Death, Other)
  Sender: FDA-Public Use
  Company Number: MY-CELGENEUS-101-20785-11022872

PATIENT
  Age: 55 Year
  Sex: Female

DRUGS (2)
  1. ZOLEDRONATE [Concomitant]
     Indication: MULTIPLE MYELOMA
     Dosage: .1333 MILLIGRAM
     Route: 065
  2. THALIDOMIDE [Suspect]
     Indication: MULTIPLE MYELOMA
     Dosage: 100 MILLIGRAM
     Route: 048

REACTIONS (6)
  - RIGHT VENTRICULAR FAILURE [None]
  - BRONCHOPNEUMONIA [None]
  - PLASMACYTOMA [None]
  - ANAEMIA [None]
  - RENAL FAILURE ACUTE [None]
  - SEPSIS [None]
